FAERS Safety Report 7883667-5 (Version None)
Quarter: 2011Q4

REPORT INFORMATION
  Report Type: 
  Country: None (occurrence: None)
  Receive Date: 20111102
  Receipt Date: 20111027
  Transmission Date: 20120403
  Serious: Yes (Death, Congenital Anomaly, Other)
  Sender: FDA-Public Use
  Company Number: US-PFIZER INC-2011264244

PATIENT

DRUGS (1)
  1. ZOLOFT [Suspect]
     Dosage: UNK
     Route: 064

REACTIONS (8)
  - MULTIPLE CARDIAC DEFECTS [None]
  - ATRIAL SEPTAL DEFECT [None]
  - RESPIRATORY DISTRESS [None]
  - PULMONARY MALFORMATION [None]
  - VENTRICULAR SEPTAL DEFECT [None]
  - MATERNAL EXPOSURE DURING PREGNANCY [None]
  - TRANSPOSITION OF THE GREAT VESSELS [None]
  - DOUBLE OUTLET RIGHT VENTRICLE [None]
